FAERS Safety Report 5199256-X (Version None)
Quarter: 2007Q1

REPORT INFORMATION
  Report Type: 
  Country: None (occurrence: None)
  Receive Date: 20070104
  Receipt Date: 20061227
  Transmission Date: 20070707
  Serious: Yes (Death, Other)
  Sender: FDA-Public Use
  Company Number: IL-PFIZER INC-2007000063

PATIENT
  Age: 79 Year
  Sex: Female

DRUGS (4)
  1. LYRICA [Suspect]
  2. LYRICA [Suspect]
     Dosage: DAILY DOSE:100MG-TEXT:25 MG IN MORNING, 75 MG IN EVENING
  3. TEGRETOL [Concomitant]
  4. CYMBALTA [Concomitant]

REACTIONS (2)
  - MYOCARDIAL ISCHAEMIA [None]
  - PULMONARY OEDEMA [None]
